FAERS Safety Report 23441364 (Version 1)
Quarter: 2024Q1

REPORT INFORMATION
  Report Type: Spontaneous
  Country: QA (occurrence: QA)
  Receive Date: 20240125
  Receipt Date: 20240125
  Transmission Date: 20240410
  Serious: Yes (Hospitalization, Other)
  Sender: FDA-Public Use
  Company Number: QA-JUBILANT CADISTA PHARMACEUTICALS-2024QA000053

PATIENT
  Age: 62 Year
  Sex: Male

DRUGS (23)
  1. AMANTADINE [Suspect]
     Active Substance: AMANTADINE
     Indication: Parkinson^s disease
     Dosage: 100 MG, 2 TIMES PER DAY
  2. CARBIDOPA\LEVODOPA [Suspect]
     Active Substance: CARBIDOPA\LEVODOPA
     Indication: Parkinson^s disease
     Dosage: 100 MG/25 MG FOUR TIMES DAILY
  3. PRAMIPEXOLE [Suspect]
     Active Substance: PRAMIPEXOLE\PRAMIPEXOLE DIHYDROCHLORIDE
     Indication: Parkinson^s disease
     Dosage: 1.5 MG DAILY
  4. TRIHEXYPHENIDYL [Suspect]
     Active Substance: TRIHEXYPHENIDYL
     Indication: Parkinson^s disease
     Dosage: 2 MG FOUR TIMES DAILY
  5. LOSARTAN [Concomitant]
     Active Substance: LOSARTAN
     Indication: Hypertension
     Dosage: 100 MG DAILY
  6. AMLODIPINE [Concomitant]
     Active Substance: AMLODIPINE BESYLATE
     Indication: Hypertension
     Dosage: 10 MG DAILY
  7. LEVOTHYROXINE [Concomitant]
     Active Substance: LEVOTHYROXINE\LEVOTHYROXINE SODIUM
     Indication: Hypothyroidism
     Dosage: 100 MCG DAILY
  8. PROPOFOL [Concomitant]
     Active Substance: PROPOFOL
     Indication: Induction of anaesthesia
     Dosage: 150 MG,  UNK
  9. FENTANYL [Concomitant]
     Active Substance: FENTANYL\FENTANYL CITRATE
     Indication: Induction of anaesthesia
     Dosage: 100 MCG,  UNK
  10. KETAMINE [Concomitant]
     Active Substance: KETAMINE
     Indication: Induction of anaesthesia
     Dosage: 50 MG,  UNK
  11. LIDOCAINE [Concomitant]
     Active Substance: LIDOCAINE
     Indication: Induction of anaesthesia
     Dosage: 100 MG,  UNK
  12. ROCURONIUM [Concomitant]
     Active Substance: ROCURONIUM BROMIDE
     Indication: Induction of anaesthesia
     Dosage: 100 MG,  UNK
  13. DESFLURANE [Concomitant]
     Active Substance: DESFLURANE
     Indication: Maintenance of anaesthesia
     Dosage: UNK,  UNK
  14. REMIFENTANIL [Concomitant]
     Active Substance: REMIFENTANIL
     Indication: Maintenance of anaesthesia
     Dosage: UNK,  UNK
  15. DEXAMETHASONE [Concomitant]
     Active Substance: DEXAMETHASONE
     Indication: Intraoperative care
     Dosage: 8 MG,  UNK
  16. CALCIUM GLUCONATE [Concomitant]
     Active Substance: CALCIUM GLUCONATE
     Indication: Intraoperative care
     Dosage: 2 G,  UNK
  17. PHENYLEPHRINE [Concomitant]
     Active Substance: PHENYLEPHRINE HYDROCHLORIDE
     Indication: Intraoperative care
     Dosage: 200 MCG,  UNK
  18. CEFUROXIME [Concomitant]
     Active Substance: CEFUROXIME
     Indication: Intraoperative care
     Dosage: A TOTAL OF 3000 MG
  19. METRONIDAZOLE [Concomitant]
     Active Substance: METRONIDAZOLE
     Indication: Intraoperative care
     Dosage: A TOTAL OF 1000 MG
  20. ACETAMINOPHEN [Concomitant]
     Active Substance: ACETAMINOPHEN
     Indication: Intraoperative care
     Dosage: 1000 MG,  UNK
  21. ONDANSETRON [Concomitant]
     Active Substance: ONDANSETRON
     Indication: Intraoperative care
     Dosage: 4 MG,  UNK
  22. MORPHINE [Concomitant]
     Active Substance: MORPHINE
     Indication: Intraoperative care
     Dosage: 10 MG,  UNK
  23. KETOROLAC [Concomitant]
     Active Substance: KETOROLAC TROMETHAMINE
     Indication: Intraoperative care
     Dosage: 30 MG,  UNK

REACTIONS (11)
  - Parkinsonism hyperpyrexia syndrome [Recovered/Resolved]
  - Tremor [Recovered/Resolved]
  - Tachycardia [Recovered/Resolved]
  - Hypertension [Recovered/Resolved]
  - Pyrexia [Recovered/Resolved]
  - Hyperhidrosis [Recovered/Resolved]
  - Dysarthria [Recovered/Resolved]
  - Cogwheel rigidity [Recovered/Resolved]
  - Depressed level of consciousness [Recovered/Resolved]
  - Dysphagia [Recovered/Resolved]
  - Asthenia [Recovered/Resolved]
